FAERS Safety Report 10472830 (Version 1)
Quarter: 2014Q3

REPORT INFORMATION
  Report Type: Spontaneous
  Country: FR (occurrence: None)
  Receive Date: 20140922
  Receipt Date: 20140922
  Transmission Date: 20150326
  Serious: Yes (Other)
  Sender: FDA-Public Use
  Company Number: 2014SCAL000100

PATIENT
  Age: 2 Day
  Sex: Male

DRUGS (1)
  1. CLONIDINE HYDROCHLORIDE. [Suspect]
     Active Substance: CLONIDINE HYDROCHLORIDE
     Indication: PRODUCT USED FOR UNKNOWN INDICATION
     Route: 063

REACTIONS (7)
  - Toxicity to various agents [None]
  - Apnoea neonatal [None]
  - Exposure during breast feeding [None]
  - Hypotonia neonatal [None]
  - Convulsion [None]
  - Depressed level of consciousness [None]
  - Somnolence [None]
